FAERS Safety Report 6862769-6 (Version None)
Quarter: 2010Q2

REPORT INFORMATION
  Report Type: 
  Country: None (occurrence: None)
  Receive Date: 20100528
  Receipt Date: 20100316
  Transmission Date: 20101027
  Serious: No
  Sender: FDA-Public Use
  Company Number: 2010034496

PATIENT
  Sex: Female

DRUGS (1)
  1. TOVIAZ [Suspect]
     Dosage: 4 MG

REACTIONS (2)
  - NAUSEA [None]
  - VOMITING [None]
